FAERS Safety Report 9829076 (Version 1)
Quarter: 2014Q1

REPORT INFORMATION
  Report Type: Report from Study
  Country: US (occurrence: US)
  Receive Date: 20140119
  Receipt Date: 20140119
  Transmission Date: 20141002
  Serious: Yes (Other)
  Sender: FDA-Public Use
  Company Number: US-ASTRAZENECA-2014SE01924

PATIENT
  Age: 43 Year
  Sex: Male
  Weight: 74.8 kg

DRUGS (5)
  1. CRESTOR [Suspect]
     Route: 048
  2. CRESTOR [Suspect]
     Dosage: HIGH DOSAGE
     Route: 048
  3. STATIN [Concomitant]
  4. LIPITOR [Concomitant]
     Dosage: LOW DOSE
  5. TRICOR [Concomitant]

REACTIONS (15)
  - Gallbladder disorder [Unknown]
  - Rhabdomyolysis [Unknown]
  - Rhabdomyolysis [Unknown]
  - Malaise [Unknown]
  - Adverse drug reaction [Unknown]
  - Memory impairment [Recovering/Resolving]
  - Myalgia [Unknown]
  - Pain [Unknown]
  - Carpal tunnel syndrome [Recovering/Resolving]
  - Hepatic pain [Unknown]
  - Non-alcoholic steatohepatitis [Unknown]
  - Adverse event [Unknown]
  - Chromaturia [Unknown]
  - Neuropathy peripheral [Recovered/Resolved]
  - Hypoaesthesia [Unknown]
